FAERS Safety Report 20622662 (Version 10)
Quarter: 2022Q2

REPORT INFORMATION
  Report Type: Report from Study
  Country: CN (occurrence: None)
  Receive Date: 20220322
  Receipt Date: 20220505
  Transmission Date: 20220721
  Serious: Yes (Hospitalization)
  Sender: FDA-Public Use
  Company Number: CN-Eisai Medical Research-EC-2022-111103

PATIENT
  Age: 63 Year
  Sex: Female
  Weight: 52 kg

DRUGS (21)
  1. LENVATINIB [Suspect]
     Active Substance: LENVATINIB
     Indication: Oesophageal cancer metastatic
     Route: 048
     Dates: start: 20220310, end: 20220314
  2. LENVATINIB [Suspect]
     Active Substance: LENVATINIB
     Route: 048
     Dates: start: 20220401
  3. PEMBROLIZUMAB [Suspect]
     Active Substance: PEMBROLIZUMAB
     Indication: Oesophageal cancer metastatic
     Route: 041
     Dates: start: 20220310, end: 20220310
  4. PEMBROLIZUMAB [Suspect]
     Active Substance: PEMBROLIZUMAB
     Route: 041
     Dates: start: 20220419
  5. CISPLATIN [Suspect]
     Active Substance: CISPLATIN
     Indication: Oesophageal cancer metastatic
     Dosage: UNKNOWN DOSE
     Route: 042
     Dates: start: 20220310, end: 20220310
  6. CISPLATIN [Suspect]
     Active Substance: CISPLATIN
     Dosage: UNKNOWN DOSE
     Route: 042
     Dates: start: 20220419
  7. FLUOROURACIL [Suspect]
     Active Substance: FLUOROURACIL
     Indication: Oesophageal cancer metastatic
     Dosage: UNKNOWN DOSE
     Route: 042
     Dates: start: 20220310, end: 20220314
  8. FLUOROURACIL [Suspect]
     Active Substance: FLUOROURACIL
     Dosage: UNKNOWN DOSE
     Route: 042
     Dates: start: 20220419
  9. ITOPRIDE HYDROCHLORIDE [Concomitant]
     Active Substance: ITOPRIDE HYDROCHLORIDE
     Dates: start: 20160101
  10. MOSAPRIDE [Concomitant]
     Active Substance: MOSAPRIDE
     Dates: start: 201601
  11. DOMPERIDONE [Concomitant]
     Active Substance: DOMPERIDONE
     Dates: start: 201601
  12. OMEPRAZOLE [Concomitant]
     Active Substance: OMEPRAZOLE
     Dates: start: 201601, end: 202203
  13. ACETAMINOPHEN\OXYCODONE HYDROCHLORIDE [Concomitant]
     Active Substance: ACETAMINOPHEN\OXYCODONE HYDROCHLORIDE
     Dates: start: 20220301
  14. HEPARIN SODIUM [Concomitant]
     Active Substance: HEPARIN SODIUM
     Dates: start: 20220309, end: 20220309
  15. LIDOCAINE HYDROCHLORIDE [Concomitant]
     Active Substance: LIDOCAINE HYDROCHLORIDE
     Route: 058
     Dates: start: 20220309, end: 20220309
  16. MIRTAZAPINE [Concomitant]
     Active Substance: MIRTAZAPINE
     Dates: start: 20220310, end: 20220311
  17. DOLASETRON MESYLATE [Concomitant]
     Active Substance: DOLASETRON MESYLATE
     Dates: start: 20220310, end: 20220311
  18. DEXAMETHASONE SODIUM PHOSPHATE [Concomitant]
     Active Substance: DEXAMETHASONE SODIUM PHOSPHATE
     Dates: start: 20220310, end: 20220311
  19. METOCLOPRAMIDE [Concomitant]
     Active Substance: METOCLOPRAMIDE
     Dates: start: 20220310, end: 20220314
  20. FOSAPREPITANT DIMEGLUMINE [Concomitant]
     Active Substance: FOSAPREPITANT DIMEGLUMINE
     Dates: start: 20220310, end: 20220310
  21. OMEPRAZOLE SODIUM [Concomitant]
     Active Substance: OMEPRAZOLE SODIUM
     Dates: start: 20220310, end: 20220311

REACTIONS (2)
  - Vomiting [Recovered/Resolved]
  - Nausea [Recovered/Resolved]

NARRATIVE: CASE EVENT DATE: 20220312
